FAERS Safety Report 18988107 (Version 1)
Quarter: 2021Q1

REPORT INFORMATION
  Report Type: Spontaneous
  Country: US (occurrence: US)
  Receive Date: 20210309
  Receipt Date: 20210309
  Transmission Date: 20210420
  Serious: Yes (Other)
  Sender: FDA-Public Use
  Company Number: US-GLAXOSMITHKLINE-US2021GSK031303

PATIENT
  Sex: Male

DRUGS (2)
  1. RANITIDINE. [Suspect]
     Active Substance: RANITIDINE
     Indication: GASTRIC DISORDER
     Dosage: 150 MG, QD
     Route: 065
     Dates: start: 200801, end: 201910
  2. RANITIDINE. [Suspect]
     Active Substance: RANITIDINE
     Indication: GASTRIC DISORDER
     Dosage: 150 MG, QD
     Route: 065
     Dates: start: 200801, end: 201910

REACTIONS (1)
  - Prostate cancer [Unknown]
